FAERS Safety Report 10069728 (Version 1)
Quarter: 2014Q2

REPORT INFORMATION
  Report Type: Spontaneous
  Country: JP (occurrence: JP)
  Receive Date: 20140410
  Receipt Date: 20140410
  Transmission Date: 20141212
  Serious: Yes (Other)
  Sender: FDA-Public Use
  Company Number: JP-ROCHE-1380763

PATIENT
  Age: 91 Year
  Sex: Male
  Weight: 42 kg

DRUGS (5)
  1. ALTEPLASE [Suspect]
     Indication: THROMBOTIC CEREBRAL INFARCTION
     Route: 042
     Dates: start: 20120124, end: 20120124
  2. RADICUT [Suspect]
     Indication: THROMBOTIC CEREBRAL INFARCTION
     Route: 041
     Dates: start: 20120124, end: 20120202
  3. GASTER (FAMOTIDINE) [Suspect]
     Indication: PRODUCT USED FOR UNKNOWN INDICATION
     Route: 065
  4. GASTER (FAMOTIDINE) [Suspect]
     Route: 051
  5. CLOPIDOGREL SULFATE [Concomitant]
     Indication: THROMBOTIC CEREBRAL INFARCTION
     Route: 048
     Dates: start: 20120208

REACTIONS (3)
  - Aspartate aminotransferase increased [Recovered/Resolved]
  - Blood creatinine increased [Recovered/Resolved]
  - Blood urea increased [Recovered/Resolved]
